FAERS Safety Report 15296832 (Version 1)
Quarter: 2018Q3

REPORT INFORMATION
  Report Type: Spontaneous
  Country: FR (occurrence: FR)
  Receive Date: 20180820
  Receipt Date: 20180820
  Transmission Date: 20181010
  Serious: Yes (Death, Hospitalization)
  Sender: FDA-Public Use
  Company Number: FR-IMPAX LABORATORIES, INC-2018-IPXL-02671

PATIENT
  Age: 51 Year
  Sex: Female

DRUGS (2)
  1. DIGOXIN. [Concomitant]
     Active Substance: DIGOXIN
     Indication: PRODUCT USED FOR UNKNOWN INDICATION
     Dosage: UNK
     Route: 065
  2. BACLOFEN. [Suspect]
     Active Substance: BACLOFEN
     Indication: INTENTIONAL OVERDOSE
     Dosage: UNK
     Route: 065

REACTIONS (6)
  - Pneumonia aspiration [Fatal]
  - Hypotension [Fatal]
  - Rhabdomyolysis [Fatal]
  - Seizure [Fatal]
  - Poisoning deliberate [Fatal]
  - Coma [Fatal]

NARRATIVE: CASE EVENT DATE: 2010
